FAERS Safety Report 13755101 (Version 2)
Quarter: 2017Q3

REPORT INFORMATION
  Report Type: Report from Study
  Country: ES (occurrence: ES)
  Receive Date: 20170714
  Receipt Date: 20170920
  Transmission Date: 20171127
  Serious: Yes (Other)
  Sender: FDA-Public Use
  Company Number: ES-VIFOR (INTERNATIONAL) INC.-VIT-2017-07315

PATIENT
  Age: 73 Year
  Sex: Male
  Weight: 84 kg

DRUGS (5)
  1. SACCHARATED IRON OXIDE [Concomitant]
     Active Substance: IRON SUCROSE
     Indication: CHRONIC KIDNEY DISEASE
     Dates: start: 20160721, end: 20170518
  2. VELPHORO [Suspect]
     Active Substance: FERRIC OXYHYDROXIDE
     Indication: HYPERPHOSPHATAEMIA
     Route: 048
     Dates: start: 20170623, end: 20170703
  3. SACCHARATED IRON OXIDE [Concomitant]
     Active Substance: IRON SUCROSE
     Dates: start: 20170519
  4. ERYTHROPOIETIN [Concomitant]
     Active Substance: ERYTHROPOIETIN
     Dates: start: 20170408, end: 20170712
  5. ERYTHROPOIETIN [Concomitant]
     Active Substance: ERYTHROPOIETIN
     Indication: CHRONIC KIDNEY DISEASE
     Dates: start: 20161122, end: 20170407

REACTIONS (1)
  - Colitis [Recovered/Resolved]

NARRATIVE: CASE EVENT DATE: 20170701
